FAERS Safety Report 15554226 (Version 4)
Quarter: 2019Q4

REPORT INFORMATION
  Report Type: Spontaneous
  Country: US (occurrence: US)
  Receive Date: 20181026
  Receipt Date: 20191204
  Transmission Date: 20200122
  Serious: No
  Sender: FDA-Public Use
  Company Number: US-PFIZER INC-2018435778

PATIENT
  Age: 67 Year
  Sex: Male

DRUGS (22)
  1. MULTI VITAMIN + MINERAL [Concomitant]
     Active Substance: MINERALS\VITAMINS
     Dosage: UNK
  2. PRILOSEC [Concomitant]
     Active Substance: OMEPRAZOLE MAGNESIUM
     Dosage: 20 MG, AS NEEDED
     Route: 048
  3. SIMETHICONE (DIMETHICONE) [Concomitant]
     Active Substance: DIMETHICONE
     Dosage: 80 MG, AS NEEDED
     Route: 048
  4. MELATONIN [Concomitant]
     Active Substance: MELATONIN
     Dosage: 10 MG, AS NEEDED
     Route: 048
  5. CAFFEINE. [Concomitant]
     Active Substance: CAFFEINE
     Indication: HYPERSOMNIA
     Dosage: 250 MG, 1X/DAY(TAB Q A.M. (EVERY MORNING))
     Route: 048
  6. ZIPRASIDONE HCL [Suspect]
     Active Substance: ZIPRASIDONE HYDROCHLORIDE
     Dosage: 300 MG, THREE TIMES A DAY
     Route: 048
  7. BENADRYL [Concomitant]
     Active Substance: DIPHENHYDRAMINE HYDROCHLORIDE
     Indication: SLEEP DISORDER
     Dosage: 25 MG, AS NEEDED (NIGHTLY AS NEEDED FOR SLEEP)
     Route: 048
  8. IMODIUM [Concomitant]
     Active Substance: LOPERAMIDE HYDROCHLORIDE
     Dosage: 2 MG, 2X/DAY
     Route: 048
  9. TOPROL XL [Concomitant]
     Active Substance: METOPROLOL SUCCINATE
     Dosage: 25 MG, DAILY
     Route: 048
  10. LYRICA [Concomitant]
     Active Substance: PREGABALIN
     Dosage: 300 MG, 3X/DAY(TAKE 1 CAP BY MOUTH 3 TIMES DAILY.)
     Route: 048
     Dates: start: 20191022
  11. CETIRIZINE HYDROCHLORIDE. [Concomitant]
     Active Substance: CETIRIZINE HYDROCHLORIDE
     Dosage: 10 MG, UNK
  12. GINKGO BILOBA [Concomitant]
     Active Substance: GINKGO
     Dosage: 360 MG, DAILY(TAKE 3 CAPS BY MOUTH 3 TIMES DAILY)
     Route: 048
  13. SYNTHROID [Concomitant]
     Active Substance: LEVOTHYROXINE SODIUM
     Dosage: 75 UG, DAILY
  14. PROVIGIL [Concomitant]
     Active Substance: MODAFINIL
     Dosage: 200 MG, DAILY
     Route: 048
  15. INFLUENZA VACCINE [Suspect]
     Active Substance: INFLUENZA VIRUS VACCINE
     Indication: IMMUNISATION
  16. KLONOPIN [Concomitant]
     Active Substance: CLONAZEPAM
     Dosage: 1 MG, 2X/DAY
     Route: 048
  17. MOBIC [Concomitant]
     Active Substance: MELOXICAM
     Dosage: 15 MG, DAILY
     Route: 048
  18. SELSUN [Concomitant]
     Active Substance: SELENIUM SULFIDE
     Dosage: UNK UNK, DAILY [APPLY DAILY. APPLY, LEAVE 10MIN, RINSE. USE DAILY X 7 DAYS, THEN MONTHLY X 3 MONTHS]
  19. PNEUMOCOCCAL 13-VAL CONJ VAC (DIPHT CRM197 PROTEIN) [Suspect]
     Active Substance: PNEUMOCOCCAL 13-VALENT CONJUGATE VACCINE
     Indication: IMMUNISATION
     Dosage: SINGLE DOSE
  20. ADDERALL [Concomitant]
     Active Substance: AMPHETAMINE ASPARTATE\AMPHETAMINE SULFATE\DEXTROAMPHETAMINE SACCHARATE\DEXTROAMPHETAMINE SULFATE
     Dosage: 20 MG, 2X/DAY
     Route: 048
  21. CRESTOR [Concomitant]
     Active Substance: ROSUVASTATIN CALCIUM
     Dosage: 20 MG, 1X/DAY
     Route: 048
  22. ZANAFLEX [Concomitant]
     Active Substance: TIZANIDINE HYDROCHLORIDE
     Dosage: 2 MG, 3X/DAY
     Route: 048

REACTIONS (1)
  - Drug hypersensitivity [Unknown]
